FAERS Safety Report 9460052 (Version 3)
Quarter: 2013Q4

REPORT INFORMATION
  Report Type: Report from Study
  Country: DE (occurrence: DE)
  Receive Date: 20130815
  Receipt Date: 20131031
  Transmission Date: 20140711
  Serious: Yes (Other)
  Sender: FDA-Public Use
  Company Number: DE-ROCHE-1260599

PATIENT
  Age: 33 Year
  Sex: Female
  Weight: 64 kg

DRUGS (2)
  1. TRASTUZUMAB EMTANSINE [Suspect]
     Indication: BREAST CANCER
     Dosage: LAST DOSE PRIOR TO SAE: 19/JUL/2013, TEMPORARILY INTERRUPTED.
     Route: 042
     Dates: start: 20130626, end: 20130807
  2. TRASTUZUMAB EMTANSINE [Suspect]
     Route: 042
     Dates: start: 20130816

REACTIONS (2)
  - Corneal cyst [Recovered/Resolved]
  - Sjogren^s syndrome [Recovered/Resolved]
